FAERS Safety Report 20756848 (Version 1)
Quarter: 2022Q2

REPORT INFORMATION
  Report Type: Spontaneous
  Country: JP (occurrence: JP)
  Receive Date: 20220427
  Receipt Date: 20220427
  Transmission Date: 20220721
  Serious: Yes (Other)
  Sender: FDA-Public Use
  Company Number: JP-LOTUS-2022-LOTUS-048734

PATIENT
  Age: 51 Year
  Sex: Male

DRUGS (1)
  1. METHOTREXATE [Suspect]
     Active Substance: METHOTREXATE
     Indication: Uveal melanoma
     Dosage: IN 0.1 ML IN THE PARS PLANA USING A 30-GAUGE NEEDLE

REACTIONS (1)
  - Central nervous system lymphoma [Unknown]
